FAERS Safety Report 4314608-5 (Version None)
Quarter: 2004Q1

REPORT INFORMATION
  Report Type: 
  Country: None (occurrence: None)
  Receive Date: 20040308
  Receipt Date: 20040122
  Transmission Date: 20041129
  Serious: Yes (Hospitalization)
  Sender: FDA-Public Use
  Company Number: BE-JNJFOC-20031200331

PATIENT
  Sex: Male

DRUGS (6)
  1. CISAPRIDE (CISAPRIDE) SUSPENSION [Suspect]
     Indication: GASTROOESOPHAGEAL REFLUX DISEASE
     Dosage: 1.2 MG, 4 IN 1 DAY
     Dates: start: 20031113
  2. VITAMIN E [Concomitant]
  3. PROTOVIT (PROTOVIT) [Concomitant]
  4. ZANTAC [Concomitant]
  5. CREON [Concomitant]
  6. MISTABRON (MESNA) [Concomitant]

REACTIONS (1)
  - CYSTIC FIBROSIS PANCREATIC [None]
